FAERS Safety Report 25197945 (Version 1)
Quarter: 2025Q2

REPORT INFORMATION
  Report Type: Spontaneous
  Country: US (occurrence: US)
  Receive Date: 20250415
  Receipt Date: 20250415
  Transmission Date: 20250717
  Serious: Yes (Life-Threatening, Hospitalization)
  Sender: MYLAN
  Company Number: US-MYLANLABS-2025M1031730

PATIENT
  Age: 90 Year
  Sex: Male

DRUGS (8)
  1. VANCOMYCIN HYDROCHLORIDE [Suspect]
     Active Substance: VANCOMYCIN HYDROCHLORIDE
     Indication: Pneumonia
  2. VANCOMYCIN HYDROCHLORIDE [Suspect]
     Active Substance: VANCOMYCIN HYDROCHLORIDE
     Route: 042
  3. VANCOMYCIN HYDROCHLORIDE [Suspect]
     Active Substance: VANCOMYCIN HYDROCHLORIDE
     Route: 042
  4. VANCOMYCIN HYDROCHLORIDE [Suspect]
     Active Substance: VANCOMYCIN HYDROCHLORIDE
  5. CEFEPIME [Concomitant]
     Active Substance: CEFEPIME HYDROCHLORIDE
     Indication: Pneumonia
  6. CEFEPIME [Concomitant]
     Active Substance: CEFEPIME HYDROCHLORIDE
     Route: 042
  7. CEFEPIME [Concomitant]
     Active Substance: CEFEPIME HYDROCHLORIDE
     Route: 042
  8. CEFEPIME [Concomitant]
     Active Substance: CEFEPIME HYDROCHLORIDE

REACTIONS (1)
  - Drug ineffective [Unknown]
